FAERS Safety Report 24918331 (Version 1)
Quarter: 2025Q1

REPORT INFORMATION
  Report Type: Spontaneous
  Country: US (occurrence: US)
  Receive Date: 20250203
  Receipt Date: 20250203
  Transmission Date: 20250408
  Serious: No
  Sender: PFIZER
  Company Number: US-PFIZER INC-202500021498

PATIENT
  Age: 43 Year
  Sex: Female

DRUGS (1)
  1. XELJANZ XR [Suspect]
     Active Substance: TOFACITINIB CITRATE
     Dosage: 11 MG, DAILY
     Route: 048
     Dates: start: 202406

REACTIONS (6)
  - Therapeutic product effect decreased [Unknown]
  - Dyspnoea [Unknown]
  - Fatigue [Unknown]
  - Rash [Unknown]
  - Skin exfoliation [Unknown]
  - Petechiae [Unknown]
